FAERS Safety Report 24914603 (Version 2)
Quarter: 2025Q1

REPORT INFORMATION
  Report Type: Spontaneous
  Country: IT (occurrence: IT)
  Receive Date: 20250203
  Receipt Date: 20250207
  Transmission Date: 20250408
  Serious: No
  Sender: NOVO NORDISK
  Company Number: IT-NOVOPROD-1338403

PATIENT
  Age: 75 Year
  Sex: Male

DRUGS (9)
  1. RYBELSUS [Suspect]
     Active Substance: SEMAGLUTIDE
     Indication: Product used for unknown indication
  2. ASPIRIN [Concomitant]
     Active Substance: ASPIRIN
  3. ROSUVASTATINE/EZETIMIBE [Concomitant]
  4. INDAPAMIDE [Concomitant]
     Active Substance: INDAPAMIDE
  5. PANTOPRAZOLE [Concomitant]
     Active Substance: PANTOPRAZOLE
  6. INSULIN NOS [Concomitant]
     Active Substance: INSULIN NOS
  7. BISOPROLOL [Concomitant]
     Active Substance: BISOPROLOL
  8. DAPAGLIFLOZIN [Concomitant]
     Active Substance: DAPAGLIFLOZIN
  9. TICAGRELOR [Concomitant]
     Active Substance: TICAGRELOR
     Indication: Product used for unknown indication

REACTIONS (2)
  - Pruritus [Unknown]
  - Rash [Unknown]
